FAERS Safety Report 8850148 (Version 1)
Quarter: 2012Q4

REPORT INFORMATION
  Report Type: 
  Country: US (occurrence: US)
  Receive Date: 20121019
  Receipt Date: 20121019
  Transmission Date: 20130627
  Serious: Yes (Other)
  Sender: FDA-Public Use
  Company Number: US-GLAXOSMITHKLINE-A0997321A

PATIENT
  Age: 40 Year
  Sex: Male

DRUGS (5)
  1. VOTRIENT [Suspect]
     Indication: VON HIPPEL-LINDAU DISEASE
     Dosage: 800MG Per day
     Route: 048
     Dates: start: 20120828
  2. LYRICA [Concomitant]
  3. CYMBALTA [Concomitant]
  4. MIDODRINE [Concomitant]
  5. BACLOFEN [Concomitant]

REACTIONS (3)
  - Erythropoiesis abnormal [Not Recovered/Not Resolved]
  - Hypertension [Unknown]
  - Off label use [Unknown]
